FAERS Safety Report 5449914-4 (Version None)
Quarter: 2007Q3

REPORT INFORMATION
  Report Type: 
  Country: None (occurrence: None)
  Receive Date: 20070907
  Receipt Date: 20070824
  Transmission Date: 20080115
  Serious: Yes (Other)
  Sender: FDA-Public Use
  Company Number: 237158K07USA

PATIENT
  Age: 49 Year
  Sex: Female

DRUGS (3)
  1. REBIF [Suspect]
     Indication: MULTIPLE SCLEROSIS
     Dosage: 44 MCG, 3 IN 1 WEEKS, SUBCUTANEOUS
     Route: 058
     Dates: start: 20020626
  2. MULTIPLE SCLEROSIS MEDICATIONS (ALL OTHER THERAPEUTIC PRODUCTS) [Concomitant]
  3. CENTRUM SILVER(CENTRUM SILVER) [Concomitant]

REACTIONS (1)
  - MACULAR DEGENERATION [None]
